FAERS Safety Report 25219964 (Version 1)
Quarter: 2025Q2

REPORT INFORMATION
  Report Type: Spontaneous
  Country: US (occurrence: None)
  Receive Date: 20250418
  Receipt Date: 20250418
  Transmission Date: 20250717
  Serious: No
  Sender: FDA-CTU
  Company Number: None

PATIENT
  Age: 38 Year
  Sex: Male
  Weight: 83.25 kg

DRUGS (6)
  1. SOFOSBUVIR\VELPATASVIR [Suspect]
     Active Substance: SOFOSBUVIR\VELPATASVIR
     Indication: Chronic hepatitis C
     Dosage: 400 MG DAILY ORAL?
     Route: 048
     Dates: start: 20231208, end: 20231223
  2. COGENTIN [Concomitant]
     Active Substance: BENZTROPINE MESYLATE
  3. ASPIRIN [Concomitant]
     Active Substance: ASPIRIN
  4. OMEPRAZOLE [Concomitant]
     Active Substance: OMEPRAZOLE
  5. SUBLOCADE [Concomitant]
     Active Substance: BUPRENORPHINE
  6. ZYPREXA [Concomitant]
     Active Substance: OLANZAPINE

REACTIONS (2)
  - Illness [None]
  - Hepatitis B [None]

NARRATIVE: CASE EVENT DATE: 20231223
